FAERS Safety Report 6158727-X (Version None)
Quarter: 2009Q2

REPORT INFORMATION
  Report Type: 
  Country: None (occurrence: None)
  Receive Date: 20090415
  Receipt Date: 20090331
  Transmission Date: 20091009
  Serious: Yes (Life-Threatening, Hospitalization, Other)
  Sender: FDA-Public Use
  Company Number: JHP200900100

PATIENT
  Sex: Female

DRUGS (1)
  1. PITOCIN [Suspect]
     Indication: LABOUR INDUCTION
     Dosage: 2 MU/MIN INCREASING BY 2 MU/MIN EVERY 20 MINUTES, INTRAVEOUS
     Route: 042

REACTIONS (8)
  - CAESAREAN SECTION [None]
  - DIALYSIS [None]
  - DISSEMINATED INTRAVASCULAR COAGULATION [None]
  - DRUG EXPOSURE DURING PREGNANCY [None]
  - POSTPARTUM HAEMORRHAGE [None]
  - PULMONARY OEDEMA [None]
  - UTERINE ATONY [None]
  - UTERINE RUPTURE [None]
